FAERS Safety Report 4746884-9 (Version None)
Quarter: 2005Q3

REPORT INFORMATION
  Report Type: 
  Country: None (occurrence: None)
  Receive Date: 20050817
  Receipt Date: 20050708
  Transmission Date: 20060218
  Serious: Yes (Hospitalization)
  Sender: FDA-Public Use
  Company Number: US-MERCK-0507USA01226

PATIENT
  Age: 52 Year
  Sex: Male
  Weight: 118 kg

DRUGS (6)
  1. VIOXX [Suspect]
     Indication: MONARTHRITIS
     Route: 048
     Dates: start: 20020101, end: 20040901
  2. VIOXX [Suspect]
     Indication: PAIN
     Route: 048
     Dates: start: 20020101, end: 20040901
  3. GLUCOPHAGE [Concomitant]
     Route: 065
  4. GLYBURIDE [Concomitant]
     Route: 065
  5. PRILOSEC [Concomitant]
     Route: 048
  6. ACTOS [Concomitant]
     Route: 065

REACTIONS (4)
  - BRONCHITIS [None]
  - CHEST PAIN [None]
  - MYOCARDIAL INFARCTION [None]
  - PNEUMONIA [None]
